FAERS Safety Report 15773070 (Version 1)
Quarter: 2018Q4

REPORT INFORMATION
  Report Type: Report from Study
  Country: US (occurrence: US)
  Receive Date: 20181228
  Receipt Date: 20181228
  Transmission Date: 20190205
  Serious: Yes (Hospitalization)
  Sender: FDA-Public Use
  Company Number: US-ACTELION-A-NJ2017-164328

PATIENT
  Age: 60 Year
  Sex: Female

DRUGS (1)
  1. OPSUMIT [Suspect]
     Active Substance: MACITENTAN
     Indication: PULMONARY ARTERIAL HYPERTENSION
     Dosage: 10 MG, QD
     Route: 048
     Dates: start: 20150921

REACTIONS (6)
  - Kidney infection [Unknown]
  - Pain [Unknown]
  - Toothache [Unknown]
  - Oropharyngeal pain [Unknown]
  - Nephrolithiasis [Unknown]
  - Blood urine present [Unknown]
